FAERS Safety Report 4420743-3 (Version None)
Quarter: 2004Q3

REPORT INFORMATION
  Report Type: 
  Country: None (occurrence: None)
  Receive Date: 20040809
  Receipt Date: 20040512
  Transmission Date: 20050211
  Serious: No
  Sender: FDA-Public Use
  Company Number: US-GLAXOSMITHKLINE-A0510541A

PATIENT
  Age: 77 Year
  Sex: Female

DRUGS (6)
  1. PAXIL [Suspect]
     Indication: DEPRESSION
     Dosage: 20MG PER DAY
     Route: 048
  2. LIPITOR [Concomitant]
  3. IMIPRAMINE [Concomitant]
  4. FOLIC ACID [Concomitant]
  5. QUININE SULFATE [Concomitant]
  6. ATENOLOL [Concomitant]

REACTIONS (1)
  - HYPERHIDROSIS [None]
